FAERS Safety Report 11158803 (Version 2)
Quarter: 2015Q3

REPORT INFORMATION
  Report Type: Spontaneous
  Country: US (occurrence: US)
  Receive Date: 20150603
  Receipt Date: 20150721
  Transmission Date: 20151125
  Serious: Yes (Other)
  Sender: FDA-Public Use
  Company Number: US-BAYER-2015-296698

PATIENT
  Age: 39 Year
  Sex: Female

DRUGS (1)
  1. MIRENA [Suspect]
     Active Substance: LEVONORGESTREL
     Indication: CONTRACEPTION
     Dosage: 20 MCG/24HR, CONT
     Route: 015
     Dates: start: 20120810

REACTIONS (2)
  - Complication of device removal [None]
  - Device breakage [None]

NARRATIVE: CASE EVENT DATE: 20150528
